FAERS Safety Report 9866625 (Version 1)
Quarter: 2014Q1

REPORT INFORMATION
  Report Type: Spontaneous
  Country: US (occurrence: US)
  Receive Date: 20140204
  Receipt Date: 20140204
  Transmission Date: 20141002
  Serious: No
  Sender: FDA-Public Use
  Company Number: US-BIOGENIDEC-2014BI010605

PATIENT
  Sex: Female

DRUGS (1)
  1. TYSABRI [Suspect]
     Indication: MULTIPLE SCLEROSIS
     Route: 042
     Dates: start: 20090317, end: 20091215

REACTIONS (5)
  - Visual acuity reduced [Not Recovered/Not Resolved]
  - Depression [Unknown]
  - Cognitive disorder [Unknown]
  - Blindness unilateral [Not Recovered/Not Resolved]
  - Optic atrophy [Not Recovered/Not Resolved]
